FAERS Safety Report 25104744 (Version 1)
Quarter: 2025Q1

REPORT INFORMATION
  Report Type: Spontaneous
  Country: JP (occurrence: JP)
  Receive Date: 20250321
  Receipt Date: 20250321
  Transmission Date: 20250409
  Serious: Yes (Other)
  Sender: UCB
  Company Number: JP-MMM-Otsuka-RSB40TJP

PATIENT
  Age: 58 Year
  Sex: Male

DRUGS (6)
  1. NEUPRO [Suspect]
     Active Substance: ROTIGOTINE
     Indication: Parkinson^s disease
     Route: 062
  2. CARBIDOPA\LEVODOPA [Concomitant]
     Active Substance: CARBIDOPA\LEVODOPA
     Indication: Parkinson^s disease
  3. RASAGILINE MESYLATE [Concomitant]
     Active Substance: RASAGILINE MESYLATE
     Indication: Parkinson^s disease
  4. CARBIDOPA\ENTACAPONE\LEVODOPA [Concomitant]
     Active Substance: CARBIDOPA\ENTACAPONE\LEVODOPA
     Indication: Parkinson^s disease
  5. TRIHEXYPHENIDYL HYDROCHLORIDE [Concomitant]
     Active Substance: TRIHEXYPHENIDYL HYDROCHLORIDE
     Indication: Parkinson^s disease
  6. ISTRADEFYLLINE [Concomitant]
     Active Substance: ISTRADEFYLLINE
     Indication: Parkinson^s disease

REACTIONS (2)
  - Pleurothotonus [Recovering/Resolving]
  - Intentional product use issue [Unknown]
